FAERS Safety Report 11629213 (Version 1)
Quarter: 2015Q4

REPORT INFORMATION
  Report Type: Spontaneous
  Country: None (occurrence: None)
  Receive Date: 20151013
  Receipt Date: 20151013
  Transmission Date: 20160304
  Serious: Yes (Hospitalization)
  Sender: FDA-Public Use
  Company Number: None

PATIENT
  Age: 48 Year
  Sex: Male
  Weight: 135 kg

DRUGS (11)
  1. DARBEPOETIN [Concomitant]
     Active Substance: DARBEPOETIN ALFA
  2. NORCO [Concomitant]
     Active Substance: ACETAMINOPHEN\HYDROCODONE BITARTRATE
  3. MIDODRINE [Concomitant]
     Active Substance: MIDODRINE
  4. TAMSULOSIN [Concomitant]
     Active Substance: TAMSULOSIN
  5. CEFEPIME [Concomitant]
     Active Substance: CEFEPIME HYDROCHLORIDE
  6. ASPIRIN. [Concomitant]
     Active Substance: ASPIRIN
  7. VANCOMYCIN [Concomitant]
     Active Substance: VANCOMYCIN
  8. LEVETIRACETAM 250MG [Suspect]
     Active Substance: LEVETIRACETAM
     Indication: SEIZURE
     Dosage: 750 TUES, THURS, SAT, 500 OTHER
     Route: 048
  9. LEVETIRACETAM 500MG [Suspect]
     Active Substance: LEVETIRACETAM
  10. DAPTOMYCIN. [Concomitant]
     Active Substance: DAPTOMYCIN
  11. KEPPRA [Concomitant]
     Active Substance: LEVETIRACETAM

REACTIONS (2)
  - Hypoglycaemia [None]
  - Sepsis [None]

NARRATIVE: CASE EVENT DATE: 20150929
